FAERS Safety Report 25963975 (Version 1)
Quarter: 2025Q4

REPORT INFORMATION
  Report Type: Spontaneous
  Country: US (occurrence: US)
  Receive Date: 20251027
  Receipt Date: 20251027
  Transmission Date: 20260117
  Serious: No
  Sender: DR REDDYS
  Company Number: US-DRL-USA-USA/2025/10/015876

PATIENT
  Age: 38 Year
  Sex: Male

DRUGS (6)
  1. LEVOFLOXACIN [Suspect]
     Active Substance: LEVOFLOXACIN
     Indication: Hidradenitis
  2. FINASTERIDE [Suspect]
     Active Substance: FINASTERIDE
     Indication: Hidradenitis
  3. CLINDAMYCIN [Suspect]
     Active Substance: CLINDAMYCIN
     Indication: Hidradenitis
  4. RIFAMPIN [Suspect]
     Active Substance: RIFAMPIN
     Indication: Hidradenitis
  5. CHLORHEXIDINE [Suspect]
     Active Substance: CHLORHEXIDINE
     Indication: Hidradenitis
  6. INFLIXIMAB [Suspect]
     Active Substance: INFLIXIMAB
     Indication: Hidradenitis

REACTIONS (5)
  - Diarrhoea [Unknown]
  - Vomiting [Unknown]
  - Gastrointestinal pain [Unknown]
  - Drug ineffective [Unknown]
  - Product use in unapproved indication [Unknown]
